FAERS Safety Report 5967769-6 (Version None)
Quarter: 2008Q4

REPORT INFORMATION
  Report Type: 
  Country: None (occurrence: None)
  Receive Date: 20081126
  Receipt Date: 20081114
  Transmission Date: 20090506
  Serious: Yes (Other)
  Sender: FDA-Public Use
  Company Number: US-JNJFOC-20081104278

PATIENT
  Sex: Female
  Weight: 4.54 kg

DRUGS (1)
  1. INFANTS MYLICON NON-STAINING FORMULA [Suspect]
     Indication: FLATULENCE
     Dosage: UNSPECIFIED DOSE USED EVERY TWO HOURS, DAILY
     Route: 048

REACTIONS (3)
  - IRRITABILITY [None]
  - PHENYLALANINE SCREEN POSITIVE [None]
  - PRODUCT QUALITY ISSUE [None]
